FAERS Safety Report 18645861 (Version 1)
Quarter: 2020Q4

REPORT INFORMATION
  Report Type: Spontaneous
  Country: US (occurrence: US)
  Receive Date: 20201222
  Receipt Date: 20201222
  Transmission Date: 20210114
  Serious: Yes (Hospitalization, Other)
  Sender: FDA-Public Use
  Company Number: US-HIKMA PHARMACEUTICALS USA INC.-US-H14001-20-52870

PATIENT
  Sex: Female

DRUGS (1)
  1. AMOXICILLIN. [Suspect]
     Active Substance: AMOXICILLIN
     Indication: TONSILLITIS
     Dosage: UNKNOWN
     Route: 065

REACTIONS (4)
  - Acute kidney injury [Recovered/Resolved]
  - Glycosuria [Recovered/Resolved]
  - Tubulointerstitial nephritis [Recovered/Resolved]
  - Renal tubular dysfunction [Recovered/Resolved]
